FAERS Safety Report 7889647-8 (Version None)
Quarter: 2011Q4

REPORT INFORMATION
  Report Type: 
  Country: None (occurrence: None)
  Receive Date: 20111103
  Receipt Date: 20111031
  Transmission Date: 20120403
  Serious: Yes (Death)
  Sender: FDA-Public Use
  Company Number: CO-PFIZER INC-2011266928

PATIENT
  Sex: Male

DRUGS (5)
  1. METFORMIN [Concomitant]
     Dosage: 850 MG, 1X/DAY
     Route: 048
  2. INSULIN ZINC SUSPENSION [Concomitant]
     Dosage: 80 IU, 1X/DAY
     Route: 058
  3. HYDROCHLOROTHIAZIDE AND OLMESARTAN [Suspect]
     Dosage: OLMESARTAN MEDOXOMIL 20 MG/HYDROCHLOROTHIAZIDE 12.5 MG, 1X/DAY
     Route: 048
     Dates: start: 20071203
  4. LIPITOR [Suspect]
     Dosage: 10 MG, 1X/DAY
     Route: 048
     Dates: start: 20071203
  5. GLIBENCLAMIDE [Concomitant]
     Dosage: 5 MG, 2X/DAY
     Route: 048

REACTIONS (1)
  - DEATH [None]
